FAERS Safety Report 4281924-5 (Version None)
Quarter: 2004Q1

REPORT INFORMATION
  Report Type: 
  Country: None (occurrence: None)
  Receive Date: 20040128
  Receipt Date: 20040122
  Transmission Date: 20041129
  Serious: Yes (Death)
  Sender: FDA-Public Use
  Company Number: 163-20785-03100568

PATIENT
  Age: 55 Year
  Sex: Male

DRUGS (1)
  1. THALOMID [Suspect]
     Indication: MULTIPLE MYELOMA
     Dosage: 200 MG, QD, ORAL
     Route: 048
     Dates: start: 20020618, end: 20030501

REACTIONS (3)
  - ACUTE MYELOID LEUKAEMIA [None]
  - MALIGNANT NEOPLASM PROGRESSION [None]
  - MULTIPLE MYELOMA [None]
